FAERS Safety Report 21317187 (Version 1)
Quarter: 2022Q3

REPORT INFORMATION
  Report Type: Spontaneous
  Country: US (occurrence: US)
  Receive Date: 20220911
  Receipt Date: 20220911
  Transmission Date: 20221026
  Serious: No
  Sender: FDA-Public Use
  Company Number: US-SA-SAC20220824000344

PATIENT
  Age: 49 Year
  Sex: Female

DRUGS (20)
  1. DUPIXENT [Suspect]
     Active Substance: DUPILUMAB
     Indication: Dermatitis atopic
     Dosage: 300 MG, QOW
     Route: 058
     Dates: start: 20220331
  2. GEMFIBROZIL [Concomitant]
     Active Substance: GEMFIBROZIL
  3. PERCOCET [Concomitant]
     Active Substance: ACETAMINOPHEN\OXYCODONE HYDROCHLORIDE
     Dosage: 7.5-325 MG
  4. DICYCLOMINE HYDROCHLORIDE [Concomitant]
     Active Substance: DICYCLOMINE HYDROCHLORIDE
     Dosage: 10 MG
  5. CLONIDINE [Concomitant]
     Active Substance: CLONIDINE
  6. ZYRTEC [Concomitant]
     Active Substance: CETIRIZINE HYDROCHLORIDE
  7. VITAMIN D3 [Concomitant]
     Active Substance: CHOLECALCIFEROL
  8. PEPCID [Concomitant]
     Active Substance: FAMOTIDINE
  9. LYRICA [Concomitant]
     Active Substance: PREGABALIN
  10. PRISTIQ EXTENDED-RELEASE [Concomitant]
     Active Substance: DESVENLAFAXINE SUCCINATE
     Dosage: 100 MG, QD
  11. PROTONEX [Concomitant]
  12. VISTARIL (HYDROXYZINE HYDROCHLORIDE) [Concomitant]
     Active Substance: HYDROXYZINE HYDROCHLORIDE
  13. ONDANSETRON [Concomitant]
     Active Substance: ONDANSETRON
  14. ALBUTEROL SULFATE [Concomitant]
     Active Substance: ALBUTEROL SULFATE
  15. SCOPOLAMINE HYDROCHLORIDE [Concomitant]
     Active Substance: SCOPOLAMINE HYDROCHLORIDE
     Dosage: 1 MG/3 DAY PATCH TD 3
  16. CLOBETASOL [Concomitant]
     Active Substance: CLOBETASOL
  17. XARELTO [Concomitant]
     Active Substance: RIVAROXABAN
  18. SKYRIZI [Concomitant]
     Active Substance: RISANKIZUMAB-RZAA
  19. IRON FREE MULTIVITAMIN [Concomitant]
  20. VITAMIN D2 [Concomitant]
     Active Substance: ERGOCALCIFEROL

REACTIONS (2)
  - Sinusitis [Recovered/Resolved]
  - Exposure to communicable disease [Recovered/Resolved]

NARRATIVE: CASE EVENT DATE: 20220801
